FAERS Safety Report 9722061 (Version 1)
Quarter: 2013Q4

REPORT INFORMATION
  Report Type: Spontaneous
  Country: US (occurrence: US)
  Receive Date: 20131202
  Receipt Date: 20131202
  Transmission Date: 20140711
  Serious: No
  Sender: FDA-Public Use
  Company Number: US-BIOGENIDEC-2013BI087110

PATIENT
  Sex: Female

DRUGS (11)
  1. TECFIDERA [Suspect]
     Indication: MULTIPLE SCLEROSIS
     Route: 048
     Dates: start: 201306
  2. PREDNISONE [Concomitant]
  3. GABAPENTIN [Concomitant]
  4. MIMVEY [Concomitant]
  5. PRAVASTATIN SODIUM [Concomitant]
  6. LANSOPRAZOLE [Concomitant]
  7. LISINOPRIL HCTZ [Concomitant]
  8. OXYBUTYNIN [Concomitant]
  9. CALCIUM 600 +D [Concomitant]
  10. ASPIRIN [Concomitant]
  11. ALLERGY RELIEF D-24 [Concomitant]

REACTIONS (1)
  - Weight decreased [Recovered/Resolved]
